FAERS Safety Report 6555401-2 (Version None)
Quarter: 2010Q1

REPORT INFORMATION
  Report Type: 
  Country: None (occurrence: None)
  Receive Date: 20100128
  Receipt Date: 20091008
  Transmission Date: 20100710
  Serious: No
  Sender: FDA-Public Use
  Company Number: A0810940A

PATIENT
  Age: 23 Year
  Sex: Female

DRUGS (2)
  1. BUPROPION [Suspect]
     Indication: POST-TRAUMATIC STRESS DISORDER
     Route: 048
     Dates: start: 20080101
  2. UNKNOWN MEDICATION [Concomitant]

REACTIONS (2)
  - FEELING ABNORMAL [None]
  - MALAISE [None]
